FAERS Safety Report 20641957 (Version 5)
Quarter: 2022Q3

REPORT INFORMATION
  Report Type: Report from Study
  Country: US (occurrence: US)
  Receive Date: 20220328
  Receipt Date: 20220912
  Transmission Date: 20221027
  Serious: No
  Sender: FDA-Public Use
  Company Number: US-KYOWAKIRIN-2022BKK004023

PATIENT

DRUGS (1)
  1. MOGAMULIZUMAB [Suspect]
     Active Substance: MOGAMULIZUMAB
     Indication: Product used for unknown indication
     Dosage: UNK
     Route: 042

REACTIONS (5)
  - Skin lesion [Unknown]
  - Skin disorder [Unknown]
  - Condition aggravated [Unknown]
  - Alopecia [Unknown]
  - Adverse drug reaction [Unknown]
